FAERS Safety Report 7884414-3 (Version None)
Quarter: 2011Q4

REPORT INFORMATION
  Report Type: 
  Country: None (occurrence: None)
  Receive Date: 20111102
  Receipt Date: 20110804
  Transmission Date: 20120403
  Serious: No
  Sender: FDA-Public Use
  Company Number: US-ASTRAZENECA-2011SE46882

PATIENT
  Age: 70 Year

DRUGS (8)
  1. AVAPRO [Concomitant]
  2. LOVOTHYROXINE SODIUM [Concomitant]
  3. FLECAINIDE ACETATE [Concomitant]
  4. VANDETANIB [Suspect]
     Indication: THYROID CANCER
     Route: 048
  5. LOPERAMIDE HCL [Concomitant]
  6. PRADAXA [Concomitant]
  7. METOPROLOL TARTRATE [Concomitant]
  8. PROCHLORPERAZINE MALEATE [Concomitant]

REACTIONS (3)
  - PETECHIAE [None]
  - MUSCULAR WEAKNESS [None]
  - MUSCLE SPASMS [None]
